FAERS Safety Report 15535814 (Version 12)
Quarter: 2019Q4

REPORT INFORMATION
  Report Type: Spontaneous
  Country: US (occurrence: US)
  Receive Date: 20181022
  Receipt Date: 20191106
  Transmission Date: 20200122
  Serious: Yes (Hospitalization, Other)
  Sender: FDA-Public Use
  Company Number: US-PFIZER INC-2018418843

PATIENT
  Age: 91 Year
  Sex: Female
  Weight: 48.53 kg

DRUGS (11)
  1. XELJANZ [Suspect]
     Active Substance: TOFACITINIB CITRATE
     Indication: RHEUMATOID ARTHRITIS
     Dosage: 5 MG, UNK
     Route: 048
  2. XELJANZ [Suspect]
     Active Substance: TOFACITINIB CITRATE
     Dosage: 5 MG, 1X/DAY
     Route: 048
     Dates: start: 20190612
  3. PREDNISONE. [Concomitant]
     Active Substance: PREDNISONE
     Dosage: 1.5 MG (TAPERING OFF), DAILY
  4. XELJANZ [Suspect]
     Active Substance: TOFACITINIB CITRATE
     Indication: ARTHRALGIA
     Dosage: 5 MG, ALTERNATE DAY (EVERY OTHER DAY)
     Route: 048
     Dates: end: 20180920
  5. XELJANZ [Suspect]
     Active Substance: TOFACITINIB CITRATE
     Dosage: 5 MG, 1X/DAY
     Route: 048
     Dates: start: 20190620
  6. XELJANZ [Suspect]
     Active Substance: TOFACITINIB CITRATE
     Indication: OSTEOARTHRITIS
     Dosage: 5 MG, ALTERNATE DAY (ONCE DAILY EVERY OTHER DAY)
     Route: 048
  7. PROLIA [Concomitant]
     Active Substance: DENOSUMAB
     Indication: OSTEOARTHRITIS
     Dosage: UNK
  8. PREDNISONE. [Concomitant]
     Active Substance: PREDNISONE
     Dosage: UNK, DAILY
     Dates: start: 2018
  9. PREDNISONE. [Concomitant]
     Active Substance: PREDNISONE
     Dosage: 3 MG, 1X/DAY
  10. PREDNISONE. [Concomitant]
     Active Substance: PREDNISONE
     Dosage: 1 MG, 4X/DAY
  11. PREDNISONE. [Concomitant]
     Active Substance: PREDNISONE
     Dosage: 5 MG, 1X/DAY

REACTIONS (38)
  - Sleep disorder [Recovering/Resolving]
  - Headache [Not Recovered/Not Resolved]
  - Cough [Not Recovered/Not Resolved]
  - Blindness [Not Recovered/Not Resolved]
  - Drug withdrawal syndrome [Unknown]
  - Muscle spasms [Unknown]
  - Insomnia [Recovered/Resolved]
  - Off label use [Unknown]
  - Circumstance or information capable of leading to medication error [Unknown]
  - Dry eye [Not Recovered/Not Resolved]
  - Glaucoma [Unknown]
  - Gastrointestinal disorder [Recovered/Resolved]
  - Back pain [Unknown]
  - Dizziness [Recovered/Resolved]
  - Confusional state [Recovered/Resolved]
  - Abdominal pain upper [Recovered/Resolved]
  - Dry throat [Not Recovered/Not Resolved]
  - Dry mouth [Not Recovered/Not Resolved]
  - Fatigue [Recovering/Resolving]
  - Drug ineffective [Unknown]
  - Pruritus [Unknown]
  - Malaise [Unknown]
  - Myalgia [Unknown]
  - Night sweats [Recovering/Resolving]
  - Feeling abnormal [Recovered/Resolved]
  - Nightmare [Recovering/Resolving]
  - Abdominal discomfort [Recovering/Resolving]
  - Herpes zoster [Unknown]
  - Abdominal pain [Unknown]
  - Oesophageal pain [Recovering/Resolving]
  - Product use issue [Unknown]
  - Nausea [Not Recovered/Not Resolved]
  - Chest pain [Recovering/Resolving]
  - Chills [Recovering/Resolving]
  - Somnolence [Recovering/Resolving]
  - Pain [Recovering/Resolving]
  - Arthropathy [Unknown]
  - Mobility decreased [Unknown]
